FAERS Safety Report 12820657 (Version 2)
Quarter: 2016Q4

REPORT INFORMATION
  Report Type: Spontaneous
  Country: US (occurrence: US)
  Receive Date: 20161006
  Receipt Date: 20161021
  Transmission Date: 20170207
  Serious: Yes (Hospitalization)
  Sender: FDA-Public Use
  Company Number: US-EISAI MEDICAL RESEARCH-EC-2016-020692

PATIENT
  Age: 13 Year
  Sex: Female
  Weight: 59 kg

DRUGS (12)
  1. FYCOMPA [Suspect]
     Active Substance: PERAMPANEL
     Route: 048
     Dates: start: 20160902, end: 20160907
  2. ONFI [Concomitant]
     Active Substance: CLOBAZAM
     Indication: SIMPLE PARTIAL SEIZURES
  3. FYCOMPA [Suspect]
     Active Substance: PERAMPANEL
     Indication: PARTIAL SEIZURES
     Route: 048
     Dates: start: 20160805, end: 201608
  4. KEPPRA XL [Concomitant]
     Indication: PARTIAL SEIZURES
     Dosage: UNKNOWN
     Route: 065
  5. LAMOTRIGINE XL [Concomitant]
     Indication: SIMPLE PARTIAL SEIZURES
  6. ONFI [Concomitant]
     Active Substance: CLOBAZAM
     Indication: PARTIAL SEIZURES
     Dosage: UNKNOWN
     Route: 065
  7. FYCOMPA [Suspect]
     Active Substance: PERAMPANEL
     Route: 048
     Dates: start: 201608, end: 20160901
  8. FYCOMPA [Suspect]
     Active Substance: PERAMPANEL
     Route: 048
     Dates: start: 20160908, end: 201609
  9. FYCOMPA [Suspect]
     Active Substance: PERAMPANEL
     Indication: SIMPLE PARTIAL SEIZURES
     Route: 048
     Dates: start: 201608, end: 201608
  10. FYCOMPA [Suspect]
     Active Substance: PERAMPANEL
     Dosage: DOWN TITRATION (DOSE UNKNOWN)
     Route: 048
     Dates: start: 201609, end: 20160922
  11. KEPPRA XL [Concomitant]
     Indication: SIMPLE PARTIAL SEIZURES
  12. LAMOTRIGINE XL [Concomitant]
     Indication: PARTIAL SEIZURES
     Dosage: UNKNOWN
     Route: 065

REACTIONS (11)
  - Muscle twitching [Not Recovered/Not Resolved]
  - Dizziness [Recovering/Resolving]
  - Throat irritation [Not Recovered/Not Resolved]
  - Dry mouth [Not Recovered/Not Resolved]
  - Coordination abnormal [Recovering/Resolving]
  - Neck pain [Not Recovered/Not Resolved]
  - Agitation [Recovering/Resolving]
  - Somnolence [Recovering/Resolving]
  - Dysphonia [Not Recovered/Not Resolved]
  - Weight increased [Recovering/Resolving]
  - Vertigo [Recovering/Resolving]

NARRATIVE: CASE EVENT DATE: 201608
